FAERS Safety Report 7529017-5 (Version None)
Quarter: 2011Q2

REPORT INFORMATION
  Report Type: 
  Country: None (occurrence: None)
  Receive Date: 20110531
  Receipt Date: 20110519
  Transmission Date: 20111010
  Serious: No
  Sender: FDA-Public Use
  Company Number: 2011-00414

PATIENT
  Sex: Female

DRUGS (3)
  1. ZICAM COLD REMEDY NASAL GEL [Suspect]
     Dosage: 2 DAYS
     Dates: start: 20010512, end: 20010513
  2. ZICAM COLD REMEDY NASAL GEL [Suspect]
     Dosage: 2 DAYS
     Dates: start: 20010507, end: 20010508
  3. ZICAM COLD REMEDY NASAL GEL [Suspect]
     Dosage: 2 DAYS
     Dates: start: 20010925, end: 20010926

REACTIONS (2)
  - AGEUSIA [None]
  - ANOSMIA [None]
